FAERS Safety Report 17592874 (Version 1)
Quarter: 2020Q1

REPORT INFORMATION
  Report Type: Spontaneous
  Country: US (occurrence: US)
  Receive Date: 20200327
  Receipt Date: 20200327
  Transmission Date: 20200409
  Serious: Yes (Hospitalization)
  Sender: FDA-Public Use
  Company Number: US-ASTRAZENECA-2020SE41184

PATIENT
  Sex: Female

DRUGS (2)
  1. BRILINTA [Suspect]
     Active Substance: TICAGRELOR
     Dosage: 60 MG
     Route: 048
  2. BRILINTA [Suspect]
     Active Substance: TICAGRELOR
     Dosage: 90 MG
     Route: 048

REACTIONS (1)
  - Dyspnoea [Unknown]
